FAERS Safety Report 6327812-1 (Version None)
Quarter: 2009Q3

REPORT INFORMATION
  Report Type: 
  Country: None (occurrence: None)
  Receive Date: 20090824
  Receipt Date: 20090814
  Transmission Date: 20100115
  Serious: Yes (Other)
  Sender: FDA-Public Use
  Company Number: 1000007893

PATIENT
  Age: 47 Year
  Sex: Female

DRUGS (5)
  1. LEXAPRO [Suspect]
     Indication: DEPRESSION
     Dosage: 20 MG (20 MG, 1 IN 1 D), ORAL
     Route: 048
     Dates: start: 20090701
  2. LAMICTAL [Concomitant]
  3. ABILIFY [Concomitant]
  4. ALBUTEROL (AEROSOL FOR INHALATION) [Concomitant]
  5. ALLEGRA [Concomitant]

REACTIONS (14)
  - ANGLE CLOSURE GLAUCOMA [None]
  - ASTHENIA [None]
  - DISEASE RECURRENCE [None]
  - DIZZINESS [None]
  - DRY MOUTH [None]
  - EYE MOVEMENT DISORDER [None]
  - FATIGUE [None]
  - FEELING HOT [None]
  - HEADACHE [None]
  - NYSTAGMUS [None]
  - PALLOR [None]
  - PERIPHERAL COLDNESS [None]
  - RESTLESS LEGS SYNDROME [None]
  - TACHYCARDIA [None]
